FAERS Safety Report 10213779 (Version 1)
Quarter: 2014Q2

REPORT INFORMATION
  Report Type: Spontaneous
  Country: US (occurrence: None)
  Receive Date: 20140602
  Receipt Date: 20140602
  Transmission Date: 20141212
  Serious: Yes (Life-Threatening)
  Sender: FDA-Public Use
  Company Number: None

PATIENT
  Age: 31 Year
  Sex: Female
  Weight: 59.42 kg

DRUGS (1)
  1. DULERA [Suspect]
     Indication: ASTHMA PROPHYLAXIS
     Route: 055
     Dates: start: 20140525, end: 20140529

REACTIONS (3)
  - Wheezing [None]
  - Drug ineffective [None]
  - Dyspnoea [None]
